FAERS Safety Report 6577167-2 (Version None)
Quarter: 2010Q1

REPORT INFORMATION
  Report Type: 
  Country: None (occurrence: None)
  Receive Date: 20100210
  Receipt Date: 20100129
  Transmission Date: 20100710
  Serious: Yes (Other)
  Sender: FDA-Public Use
  Company Number: PHHY2010JP04146

PATIENT
  Age: 64 Year
  Sex: Male
  Weight: 65 kg

DRUGS (1)
  1. IMATINIB [Suspect]
     Dosage: 400 MG DAILY
     Route: 048
     Dates: start: 20070801, end: 20080101

REACTIONS (3)
  - DYSGEUSIA [None]
  - MALAISE [None]
  - TUMOUR EXCISION [None]
